FAERS Safety Report 7058391-1 (Version None)
Quarter: 2010Q4

REPORT INFORMATION
  Report Type: 
  Country: None (occurrence: None)
  Receive Date: 20101022
  Receipt Date: 20101013
  Transmission Date: 20110411
  Serious: No
  Sender: FDA-Public Use
  Company Number: US-PFIZER INC-2010130819

PATIENT
  Sex: Female

DRUGS (1)
  1. LYRICA [Suspect]
     Dosage: UNK, 1X/DAY
     Route: 048
     Dates: start: 20100806

REACTIONS (3)
  - BLOOD TEST ABNORMAL [None]
  - MALAISE [None]
  - VOMITING [None]
